FAERS Safety Report 15853816 (Version 4)
Quarter: 2021Q1

REPORT INFORMATION
  Report Type: Spontaneous
  Country: US (occurrence: US)
  Receive Date: 20190122
  Receipt Date: 20210326
  Transmission Date: 20210419
  Serious: No
  Sender: FDA-Public Use
  Company Number: US-PFIZER INC-2019028196

PATIENT
  Age: 66 Year
  Sex: Female
  Weight: 136 kg

DRUGS (1)
  1. XELJANZ XR [Suspect]
     Active Substance: TOFACITINIB CITRATE
     Indication: RHEUMATOID ARTHRITIS
     Dosage: 11 MG, ONCE A DAY
     Route: 048

REACTIONS (4)
  - Influenza [Recovering/Resolving]
  - Cough [Unknown]
  - Nasal congestion [Unknown]
  - Illness [Unknown]

NARRATIVE: CASE EVENT DATE: 20191130
